FAERS Safety Report 7126868-6 (Version None)
Quarter: 2010Q4

REPORT INFORMATION
  Report Type: 
  Country: None (occurrence: None)
  Receive Date: 20101129
  Receipt Date: 20101022
  Transmission Date: 20110411
  Serious: Yes (Disabling, Other)
  Sender: FDA-Public Use
  Company Number: GB-AMGEN-KDL442008

PATIENT

DRUGS (7)
  1. ARANESP [Suspect]
     Indication: RENAL FAILURE CHRONIC
     Dosage: 30 A?G, QWK
     Route: 058
     Dates: start: 20080402, end: 20090227
  2. ARANESP [Suspect]
     Dosage: 50 A?G, QWK
     Route: 058
     Dates: start: 20090227, end: 20100111
  3. ARANESP [Suspect]
     Dosage: 50 A?G, QMO
     Route: 058
     Dates: start: 20100111, end: 20100520
  4. ARANESP [Suspect]
     Dosage: 50 A?G, Q2WK
     Route: 058
     Dates: start: 20100520, end: 20100921
  5. SIMVASTATIN [Concomitant]
     Route: 048
  6. ALLOPURINOL [Concomitant]
     Route: 048
  7. QUININE SULFATE [Concomitant]
     Route: 048

REACTIONS (2)
  - DIARRHOEA [None]
  - RASH GENERALISED [None]
